FAERS Safety Report 23610758 (Version 2)
Quarter: 2024Q1

REPORT INFORMATION
  Report Type: Spontaneous
  Country: JP (occurrence: None)
  Receive Date: 20240308
  Receipt Date: 20240320
  Transmission Date: 20240410
  Serious: Yes (Hospitalization)
  Sender: FDA-Public Use
  Company Number: 2024A052932

PATIENT
  Age: 66 Year
  Sex: Male
  Weight: 80 kg

DRUGS (14)
  1. IMFINZI [Suspect]
     Active Substance: DURVALUMAB
     Indication: Hepatocellular carcinoma
     Dosage: 1500.0MG UNKNOWN
     Route: 041
     Dates: start: 20140110, end: 20140110
  2. IMJUDO [Suspect]
     Active Substance: TREMELIMUMAB\TREMELIMUMAB-ACTL
     Indication: Hepatocellular carcinoma
     Dosage: 300.0MG UNKNOWN
     Route: 041
     Dates: start: 20140110, end: 20140110
  3. LANSOPRAZOLE [Concomitant]
     Active Substance: LANSOPRAZOLE
     Dosage: DOSE UNKNOWN
     Route: 048
  4. AMLODIPINE [Concomitant]
     Active Substance: AMLODIPINE BESYLATE
     Dosage: DOSE UNKNOWN
     Route: 048
  5. ASPIRIN [Concomitant]
     Active Substance: ASPIRIN
     Dosage: DOSE UNKNOWN
     Route: 048
  6. OLMESARTAN MEDOXOMIL [Concomitant]
     Active Substance: OLMESARTAN MEDOXOMIL
     Dosage: DOSE UNKNOWN
     Route: 048
  7. POLAPREZINC [Concomitant]
     Active Substance: POLAPREZINC
     Dosage: DOSE UNKNOWN
     Route: 048
  8. ALLOPURINOL [Concomitant]
     Active Substance: ALLOPURINOL
     Dosage: DOSE UNKNOWN
     Route: 048
  9. OLOPATADINE HYDROCHLORIDE [Concomitant]
     Active Substance: OLOPATADINE HYDROCHLORIDE
     Dosage: DOSE UNKNOWN
     Route: 065
  10. URSODIOL [Concomitant]
     Active Substance: URSODIOL
     Dosage: DOSE UNKNOWN
     Route: 065
  11. MAGNESIUM OXIDE [Concomitant]
     Active Substance: MAGNESIUM OXIDE
     Dosage: DOSE UNKNOWN
     Route: 065
  12. CALCIUM POLYSTYRENE SULFONATE [Concomitant]
     Active Substance: CALCIUM POLYSTYRENE SULFONATE
     Dosage: DOSE UNKNOWN
     Route: 048
  13. RUPAFIN [Concomitant]
     Active Substance: RUPATADINE FUMARATE
     Dosage: DOSE UNKNOWN
     Route: 065
  14. LINAGLIPTIN [Concomitant]
     Active Substance: LINAGLIPTIN
     Dosage: DOSE UNKNOWN
     Route: 065

REACTIONS (4)
  - Immune-mediated enterocolitis [Recovered/Resolved]
  - Enterocolitis bacterial [Recovered/Resolved]
  - Renal impairment [Unknown]
  - Blood pressure decreased [Recovered/Resolved]

NARRATIVE: CASE EVENT DATE: 20240115
